FAERS Safety Report 6794128-9 (Version None)
Quarter: 2010Q2

REPORT INFORMATION
  Report Type: 
  Country: None (occurrence: None)
  Receive Date: 20100624
  Receipt Date: 20091105
  Transmission Date: 20101027
  Serious: Yes (Hospitalization)
  Sender: FDA-Public Use
  Company Number: JP-PFIZER INC-2009279427

PATIENT
  Age: 84 Year
  Sex: Female

DRUGS (1)
  1. UNASYN [Suspect]
     Indication: PNEUMONIA ASPIRATION
     Dosage: 6 G/DAY
     Route: 042
     Dates: start: 20090926, end: 20090930

REACTIONS (2)
  - PYREXIA [None]
  - RASH [None]
